FAERS Safety Report 6739949-3 (Version None)
Quarter: 2010Q2

REPORT INFORMATION
  Report Type: 
  Country: None (occurrence: None)
  Receive Date: 20100525
  Receipt Date: 20100513
  Transmission Date: 20101027
  Serious: Yes (Other)
  Sender: FDA-Public Use
  Company Number: AU-PFIZER INC-2010060600

PATIENT
  Age: 45 Year
  Sex: Male

DRUGS (1)
  1. ZELDOX [Suspect]
     Indication: SCHIZOPHRENIA
     Dosage: 80 MG, 2X/DAY

REACTIONS (3)
  - ACTIVATION SYNDROME [None]
  - AGITATION [None]
  - INSOMNIA [None]
